FAERS Safety Report 9729072 (Version 1)
Quarter: 2013Q4

REPORT INFORMATION
  Report Type: Spontaneous
  Country: US (occurrence: None)
  Receive Date: 20131203
  Receipt Date: 20131203
  Transmission Date: 20140711
  Serious: Yes (Hospitalization)
  Sender: FDA-Public Use
  Company Number: None

PATIENT
  Age: 66 Year
  Sex: Male

DRUGS (2)
  1. VANCOMYCIN [Suspect]
     Dosage: CAREFUSION, MODEL # 2414-0500?OTHER 10885403227943
  2. INFUSION SET [Suspect]

REACTIONS (2)
  - Feeling abnormal [None]
  - Device infusion issue [None]
